FAERS Safety Report 8105177-2 (Version None)
Quarter: 2012Q1

REPORT INFORMATION
  Report Type: 
  Country: None (occurrence: None)
  Receive Date: 20120201
  Receipt Date: 20120125
  Transmission Date: 20120608
  Serious: No
  Sender: FDA-Public Use
  Company Number: US-ALLERGAN-1117054US

PATIENT
  Age: 55 Year
  Sex: Female

DRUGS (1)
  1. ACZONE [Suspect]
     Indication: ACNE
     Dosage: UNK
     Route: 061
     Dates: start: 20111231, end: 20120101

REACTIONS (5)
  - FACIAL PAIN [None]
  - LIP SWELLING [None]
  - EXPIRED DRUG ADMINISTERED [None]
  - SWELLING FACE [None]
  - HYPOAESTHESIA ORAL [None]
